FAERS Safety Report 14112158 (Version 2)
Quarter: 2017Q4

REPORT INFORMATION
  Report Type: Spontaneous
  Country: US (occurrence: US)
  Receive Date: 20171020
  Receipt Date: 20171229
  Transmission Date: 20180321
  Serious: No
  Sender: FDA-Public Use
  Company Number: US-GREER LABORATORIES, INC.-2030982

PATIENT
  Age: 4 Year
  Sex: Male

DRUGS (1)
  1. FOOD - ANIMAL PRODUCTS AND POULTRY PRODUCTS, EGG, WHOLE, GALLUS GALLUS [Suspect]
     Active Substance: EGG
     Indication: MULTIPLE ALLERGIES
     Route: 023

REACTIONS (1)
  - Drug ineffective [Unknown]

NARRATIVE: CASE EVENT DATE: 20170918
